FAERS Safety Report 18675580 (Version 7)
Quarter: 2024Q3

REPORT INFORMATION
  Report Type: Spontaneous
  Country: US (occurrence: US)
  Receive Date: 20201229
  Receipt Date: 20240927
  Transmission Date: 20241017
  Serious: No
  Sender: NOVARTIS
  Company Number: NVSC2020US338072

PATIENT
  Age: 53 Year
  Sex: Male
  Weight: 83.9 kg

DRUGS (3)
  1. TAFINLAR [Suspect]
     Active Substance: DABRAFENIB MESYLATE
     Indication: Thyroid cancer
     Dosage: 150 MG, BID
     Route: 048
     Dates: start: 20201023
  2. TAFINLAR [Suspect]
     Active Substance: DABRAFENIB MESYLATE
     Dosage: 150 MG, Q12H
     Route: 048
     Dates: start: 202010, end: 20231205
  3. MEKINIST [Suspect]
     Active Substance: TRAMETINIB DIMETHYL SULFOXIDE
     Indication: Thyroid cancer
     Dosage: 2 MG, QD
     Route: 048
     Dates: start: 202211, end: 20230512

REACTIONS (8)
  - Pain [Unknown]
  - Decreased activity [Unknown]
  - Blister [Unknown]
  - Diarrhoea [Unknown]
  - Arthralgia [Unknown]
  - Vision blurred [Unknown]
  - Chills [Unknown]
  - Stomatitis [Recovering/Resolving]

NARRATIVE: CASE EVENT DATE: 20230613
